FAERS Safety Report 11876716 (Version 1)
Quarter: 2015Q4

REPORT INFORMATION
  Report Type: Spontaneous
  Country: US (occurrence: US)
  Receive Date: 20151229
  Receipt Date: 20151229
  Transmission Date: 20160305
  Serious: Yes (Other)
  Sender: FDA-Public Use
  Company Number: US-BAYER-2015-494839

PATIENT
  Age: 78 Year
  Sex: Male
  Weight: 81.63 kg

DRUGS (3)
  1. ALKA-SELTZER HEARTBURN RELIEFCHEWS [Suspect]
     Active Substance: CALCIUM CARBONATE
     Indication: DYSPEPSIA
     Dosage: 1 OR 2 DF, QD
     Route: 048
  2. ALKA-SELTZER HEARTBURN RELIEFCHEWS [Suspect]
     Active Substance: CALCIUM CARBONATE
     Indication: GASTROOESOPHAGEAL REFLUX DISEASE
  3. ALKA-SELTZER HEARTBURN RELIEFCHEWS [Suspect]
     Active Substance: CALCIUM CARBONATE
     Indication: DYSPEPSIA

REACTIONS (3)
  - Fear [None]
  - Product use issue [None]
  - Epistaxis [None]

NARRATIVE: CASE EVENT DATE: 201511
